FAERS Safety Report 4648503-9 (Version None)
Quarter: 2005Q2

REPORT INFORMATION
  Report Type: 
  Country: None (occurrence: None)
  Receive Date: 20050427
  Receipt Date: 20050414
  Transmission Date: 20051028
  Serious: Yes (Other)
  Sender: FDA-Public Use
  Company Number: 2005061272

PATIENT
  Age: 45 Year
  Sex: Female

DRUGS (8)
  1. BEXTRA [Suspect]
     Indication: INFECTION
     Dosage: 40 MG, ORAL
     Route: 048
     Dates: start: 20050101
  2. TINADAZOLE (TINIDAZOLE) [Concomitant]
  3. CHLORAMPHENICOL [Concomitant]
  4. NYSTATIN [Concomitant]
  5. LOXOPROFEN SODIUM (LOXOPROFEN SODIUM) [Concomitant]
  6. FENTICONAZOLE NITRATE (FENTICONAZOLE NITRATE) [Concomitant]
  7. SECNIDAZOLE (SECNIDAZOLE) [Concomitant]
  8. MOXIFLOXACIN (MOXIFLOXACIN) [Concomitant]

REACTIONS (1)
  - PRURITUS [None]
